FAERS Safety Report 4895520-X (Version None)
Quarter: 2006Q1

REPORT INFORMATION
  Report Type: 
  Country: None (occurrence: None)
  Receive Date: 20060130
  Receipt Date: 20060119
  Transmission Date: 20060701
  Serious: Yes (Other)
  Sender: FDA-Public Use
  Company Number: US-JNJFOC-20050400067

PATIENT
  Sex: Female
  Weight: 46.49 kg

DRUGS (10)
  1. REMINYL [Suspect]
     Route: 048
  2. REMINYL [Suspect]
     Route: 048
  3. RAZADYNE ER [Suspect]
     Route: 048
  4. ALPRAZOLAM [Concomitant]
     Indication: INSOMNIA
  5. ALPRAZOLAM [Concomitant]
     Indication: ANXIETY
  6. NADOLOL [Concomitant]
  7. LUMIGAN [Concomitant]
     Indication: GLAUCOMA
     Dosage: BOTH EYES AT BEDTIME
  8. COSOPT [Concomitant]
  9. COSOPT [Concomitant]
     Indication: GLAUCOMA
     Dosage: EACH EYE
  10. ALLEGRA [Concomitant]
     Indication: SEASONAL ALLERGY
     Dosage: PRN

REACTIONS (4)
  - HEART RATE DECREASED [None]
  - HYPOTENSION [None]
  - LETHARGY [None]
  - LOSS OF CONSCIOUSNESS [None]
